FAERS Safety Report 21629814 (Version 1)
Quarter: 2022Q4

REPORT INFORMATION
  Report Type: Report from Study
  Country: US (occurrence: US)
  Receive Date: 20221122
  Receipt Date: 20221122
  Transmission Date: 20230112
  Serious: No
  Sender: FDA-Public Use
  Company Number: US-ABBVIE-22K-163-4488275-00

PATIENT
  Age: 63 Year
  Sex: Male

DRUGS (2)
  1. RINVOQ [Suspect]
     Active Substance: UPADACITINIB
     Indication: Rheumatoid arthritis
     Dosage: ER?STRENGTH: 15 MG
     Route: 048
     Dates: start: 20220614
  2. RINVOQ [Suspect]
     Active Substance: UPADACITINIB
     Indication: Rheumatoid arthritis
     Dosage: STRENGTH: 15 MG
     Route: 048

REACTIONS (9)
  - Loss of personal independence in daily activities [Unknown]
  - Musculoskeletal stiffness [Recovering/Resolving]
  - Joint range of motion decreased [Unknown]
  - Pain in extremity [Recovering/Resolving]
  - Pain [Unknown]
  - General physical condition abnormal [Unknown]
  - Arthralgia [Recovering/Resolving]
  - Mobility decreased [Unknown]
  - Grip strength decreased [Unknown]

NARRATIVE: CASE EVENT DATE: 20220901
